FAERS Safety Report 24845752 (Version 5)
Quarter: 2025Q1

REPORT INFORMATION
  Report Type: Report from Study
  Country: TH (occurrence: TH)
  Receive Date: 20250115
  Receipt Date: 20250212
  Transmission Date: 20250409
  Serious: Yes (Life-Threatening, Hospitalization, Other)
  Sender: TAKEDA
  Company Number: TH-TAKEDA-2025TUS004449

PATIENT
  Age: 15 Year
  Sex: Male
  Weight: 46 kg

DRUGS (5)
  1. RURIOCTOCOG ALFA PEGOL [Suspect]
     Active Substance: RURIOCTOCOG ALFA PEGOL
     Indication: Factor VIII deficiency
     Dosage: 14 INTERNATIONAL UNIT/KILOGRAM, 2/WEEK
     Dates: start: 20230502
  2. RURIOCTOCOG ALFA PEGOL [Suspect]
     Active Substance: RURIOCTOCOG ALFA PEGOL
  3. RURIOCTOCOG ALFA PEGOL [Suspect]
     Active Substance: RURIOCTOCOG ALFA PEGOL
  4. ACETAMINOPHEN [Concomitant]
     Active Substance: ACETAMINOPHEN
     Indication: Headache
     Dates: start: 20240124, end: 20240124
  5. ACETAMINOPHEN [Concomitant]
     Active Substance: ACETAMINOPHEN
     Indication: Nasopharyngitis
     Dates: start: 20240309, end: 20240309

REACTIONS (1)
  - Splenic rupture [Recovered/Resolved]

NARRATIVE: CASE EVENT DATE: 20250112
